FAERS Safety Report 7940844-2 (Version None)
Quarter: 2011Q4

REPORT INFORMATION
  Report Type: 
  Country: None (occurrence: None)
  Receive Date: 20111128
  Receipt Date: 20111118
  Transmission Date: 20120403
  Serious: Yes (Other)
  Sender: FDA-Public Use
  Company Number: GR-PFIZER INC-2011284034

PATIENT
  Age: 59 Year
  Sex: Male

DRUGS (2)
  1. TYGACIL [Suspect]
     Dosage: UNK
     Dates: end: 20111101
  2. VANCOMYCIN HYDROCHLORIDE [Suspect]
     Dosage: UNK
     Route: 042
     Dates: start: 20111001, end: 20111101

REACTIONS (2)
  - NEPHROTIC SYNDROME [None]
  - RENAL FAILURE ACUTE [None]
